FAERS Safety Report 19652777 (Version 3)
Quarter: 2021Q3

REPORT INFORMATION
  Report Type: Spontaneous
  Country: NL (occurrence: NL)
  Receive Date: 20210803
  Receipt Date: 20210827
  Transmission Date: 20211014
  Serious: Yes (Other)
  Sender: FDA-Public Use
  Company Number: NL-MYLANLABS-2021M1048390

PATIENT
  Age: 75 Year
  Sex: Male

DRUGS (12)
  1. QUETIAPINE. [Suspect]
     Active Substance: QUETIAPINE
     Indication: BEHAVIOUR DISORDER
     Dosage: 50 MILLIGRAM, QD
     Route: 065
  2. CITALOPRAM [Concomitant]
     Active Substance: CITALOPRAM HYDROBROMIDE
     Indication: BEHAVIOUR DISORDER
     Dosage: 20 MILLIGRAM, PRN (GIVEN SPORADICALLY), 1X DAILY
     Route: 065
  3. CLOZAPINE. [Suspect]
     Active Substance: CLOZAPINE
     Indication: BEHAVIOUR DISORDER
     Dosage: 12.5 MILLIGRAM, QD
     Route: 065
  4. ALPRAZOLAM. [Concomitant]
     Active Substance: ALPRAZOLAM
     Indication: BEHAVIOUR DISORDER
     Dosage: 0.5 MILLIGRAM, THREE TIMES/DAY
     Route: 065
  5. MIDAZOLAM. [Concomitant]
     Active Substance: MIDAZOLAM
     Indication: BEHAVIOUR DISORDER
     Dosage: UNK
     Route: 045
  6. CITALOPRAM [Concomitant]
     Active Substance: CITALOPRAM HYDROBROMIDE
     Indication: DEMENTIA
     Dosage: UNK
     Route: 065
  7. CLOZAPINE. [Suspect]
     Active Substance: CLOZAPINE
     Indication: DEMENTIA
     Dosage: 25 MILLIGRAM, QD (12.5 MG TWICE DAILY)
     Route: 065
  8. LORAZEPAM. [Concomitant]
     Active Substance: LORAZEPAM
     Indication: BEHAVIOUR DISORDER
     Dosage: 2.5 MILLIGRAM, PRN,  (GIVEN SPORADICALLY), AVERAGE 2.5 MG 2X DAILY
     Route: 065
  9. LORAZEPAM. [Concomitant]
     Active Substance: LORAZEPAM
     Indication: DEMENTIA
     Dosage: UNK
     Route: 065
  10. MIDAZOLAM. [Concomitant]
     Active Substance: MIDAZOLAM
     Indication: BEHAVIOUR DISORDER
     Dosage: 7.5 MILLIGRAM
     Route: 065
  11. OXAZEPAM. [Concomitant]
     Active Substance: OXAZEPAM
     Indication: BEHAVIOUR DISORDER
     Dosage: 10 MILLIGRAM, THREE TIMES/DAY
     Route: 065
  12. VALPROIC ACID. [Concomitant]
     Active Substance: VALPROIC ACID
     Indication: BEHAVIOUR DISORDER
     Dosage: 300 MILLIGRAM, BID
     Route: 065

REACTIONS (3)
  - Hepatic enzyme abnormal [Unknown]
  - Drug ineffective [Unknown]
  - Off label use [Unknown]
